FAERS Safety Report 7336511-9 (Version None)
Quarter: 2011Q1

REPORT INFORMATION
  Report Type: 
  Country: None (occurrence: None)
  Receive Date: 20110307
  Receipt Date: 20110221
  Transmission Date: 20110831
  Serious: No
  Sender: FDA-Public Use
  Company Number: US-AMGEN-USASP2011010042

PATIENT
  Age: 53 Year
  Sex: Female

DRUGS (8)
  1. ADVAIR DISKUS 100/50 [Concomitant]
  2. DIAZEPAM [Concomitant]
  3. XGEVA [Suspect]
     Indication: BREAST CANCER METASTATIC
     Dosage: 120 MG, Q4WK
     Dates: start: 20110217
  4. SPIRIVA [Concomitant]
  5. XELODA [Concomitant]
  6. SYNTHROID [Concomitant]
  7. OMEPRAZOLE [Concomitant]
  8. OXYCODONE [Concomitant]

REACTIONS (5)
  - DIZZINESS [None]
  - GASTRIC DILATATION [None]
  - FATIGUE [None]
  - FLATULENCE [None]
  - ERUCTATION [None]
